FAERS Safety Report 19489279 (Version 1)
Quarter: 2021Q3

REPORT INFORMATION
  Report Type: Spontaneous
  Country: US (occurrence: US)
  Receive Date: 20210703
  Receipt Date: 20210703
  Transmission Date: 20211014
  Serious: Yes (Death, Hospitalization)
  Sender: FDA-Public Use
  Company Number: NVSC2021US149020

PATIENT
  Age: 67 Year
  Sex: Female

DRUGS (4)
  1. RANITIDINE. [Suspect]
     Active Substance: RANITIDINE
     Indication: DYSPEPSIA
     Dosage: 300 MG, QD
     Route: 065
     Dates: start: 200601, end: 201612
  2. RANITIDINE. [Suspect]
     Active Substance: RANITIDINE
     Indication: HIATUS HERNIA
  3. RANITIDINE. [Suspect]
     Active Substance: RANITIDINE
     Indication: DYSPEPSIA
     Dosage: 300 MG, QD
     Route: 065
     Dates: start: 200601, end: 201612
  4. RANITIDINE. [Suspect]
     Active Substance: RANITIDINE
     Indication: HIATUS HERNIA

REACTIONS (8)
  - Gastrointestinal carcinoma [Unknown]
  - Product use in unapproved indication [Unknown]
  - Breast cancer [Unknown]
  - Ovarian cancer [Unknown]
  - Brain neoplasm malignant [Unknown]
  - Death [Fatal]
  - Lung neoplasm malignant [Unknown]
  - Uterine cancer [Unknown]

NARRATIVE: CASE EVENT DATE: 20150101
